FAERS Safety Report 20385953 (Version 1)
Quarter: 2022Q1

REPORT INFORMATION
  Report Type: Spontaneous
  Country: US (occurrence: US)
  Receive Date: 20220127
  Receipt Date: 20220127
  Transmission Date: 20220423
  Serious: No
  Sender: FDA-Public Use
  Company Number: US-BAUSCH-BL-2022-002220

PATIENT
  Sex: Female

DRUGS (1)
  1. NORITATE [Suspect]
     Active Substance: METRONIDAZOLE
     Indication: Rosacea
     Route: 065

REACTIONS (2)
  - Rosacea [Unknown]
  - Disease recurrence [Unknown]
